FAERS Safety Report 17588347 (Version 4)
Quarter: 2020Q2

REPORT INFORMATION
  Report Type: Not Available
  Country: US (occurrence: US)
  Receive Date: 20200326
  Receipt Date: 20200429
  Transmission Date: 20200713
  Serious: Yes (Hospitalization)
  Sender: FDA-Public Use
  Company Number: US-NEUROCRINE BIOSCIENCES INC.-2020NBI00961

PATIENT
  Age: 39 Year
  Sex: Female

DRUGS (1)
  1. INGREZZA [Suspect]
     Active Substance: VALBENAZINE
     Indication: TARDIVE DYSKINESIA
     Route: 048
     Dates: start: 20190515

REACTIONS (4)
  - Tardive dyskinesia [Unknown]
  - Hospitalisation [Unknown]
  - Oedema [Unknown]
  - Localised oedema [Unknown]

NARRATIVE: CASE EVENT DATE: 2020
